FAERS Safety Report 13879099 (Version 4)
Quarter: 2019Q2

REPORT INFORMATION
  Report Type: Spontaneous
  Country: CA (occurrence: CA)
  Receive Date: 20170817
  Receipt Date: 20190422
  Transmission Date: 20190711
  Serious: Yes (Other)
  Sender: FDA-Public Use
  Company Number: CA-PFIZER INC-2017357261

PATIENT
  Sex: Female
  Weight: 82 kg

DRUGS (14)
  1. SULFASALAZINE. [Suspect]
     Active Substance: SULFASALAZINE
     Dosage: UNK
     Route: 065
  2. PLAQUENIL [Suspect]
     Active Substance: HYDROXYCHLOROQUINE SULFATE
     Dosage: UNK
     Route: 065
  3. HYDROXYCHLOROQUINE SULFATE. [Suspect]
     Active Substance: HYDROXYCHLOROQUINE SULFATE
     Dosage: UNK
  4. FOLIC ACID. [Concomitant]
     Active Substance: FOLIC ACID
     Dosage: UNK
  5. HUMIRA [Suspect]
     Active Substance: ADALIMUMAB
     Dosage: UNK(SOLUTION)
     Route: 058
  6. APO MELOXICAM [Suspect]
     Active Substance: MELOXICAM
     Dosage: UNK
     Route: 065
  7. ENBREL [Suspect]
     Active Substance: ETANERCEPT
     Indication: ANKYLOSING SPONDYLITIS
     Dosage: 500 MG, QWK
     Route: 065
  8. MOBICOX [Suspect]
     Active Substance: MELOXICAM
     Dosage: UNK
     Route: 065
  9. MELOXICAM. [Suspect]
     Active Substance: MELOXICAM
     Dosage: UNK
     Route: 065
  10. NAPROXEN. [Concomitant]
     Active Substance: NAPROXEN
     Dosage: UNK
  11. HYDROXYCHLOROQUINE [Suspect]
     Active Substance: HYDROXYCHLOROQUINE
     Dosage: UNK
     Route: 065
  12. METHOTREXATE. [Concomitant]
     Active Substance: METHOTREXATE
     Dosage: UNK
  13. PANTOPRAZOLE [Concomitant]
     Active Substance: PANTOPRAZOLE
     Dosage: UNK
  14. AMITRIPTYLINE [Suspect]
     Active Substance: AMITRIPTYLINE
     Dosage: UNK
     Route: 065

REACTIONS (21)
  - Spinal osteoarthritis [Recovering/Resolving]
  - Therapeutic product effect incomplete [Recovering/Resolving]
  - Back pain [Recovering/Resolving]
  - Sacroiliitis [Recovering/Resolving]
  - HLA marker study positive [Recovering/Resolving]
  - Somnolence [Recovering/Resolving]
  - Drug ineffective [Recovering/Resolving]
  - Ankylosing spondylitis [Recovering/Resolving]
  - Fibromyalgia [Recovering/Resolving]
  - Musculoskeletal stiffness [Recovering/Resolving]
  - Bone pain [Recovering/Resolving]
  - Joint swelling [Recovering/Resolving]
  - Kyphoscoliosis [Recovering/Resolving]
  - Musculoskeletal discomfort [Recovering/Resolving]
  - Chest pain [Recovering/Resolving]
  - Arthritis [Recovering/Resolving]
  - Myofascial pain syndrome [Recovering/Resolving]
  - Plantar fasciitis [Recovering/Resolving]
  - Spondyloarthropathy [Recovering/Resolving]
  - Immunodeficiency [Recovering/Resolving]
  - Arthralgia [Recovering/Resolving]
